FAERS Safety Report 5765938-1 (Version None)
Quarter: 2008Q2

REPORT INFORMATION
  Report Type: 
  Country: None (occurrence: None)
  Receive Date: 20080611
  Receipt Date: 20071009
  Transmission Date: 20081010
  Serious: Yes (Hospitalization, Other)
  Sender: FDA-Public Use
  Company Number: US-BRISTOL-MYERS SQUIBB COMPANY-13935085

PATIENT
  Age: 68 Year
  Sex: Female
  Weight: 61 kg

DRUGS (5)
  1. SINEMET [Suspect]
     Indication: PARKINSON'S DISEASE
     Dosage: HALF TABLET PER DAY.
     Route: 048
     Dates: start: 20070801
  2. MAGNESIUM [Concomitant]
  3. POTASSIUM CHLORIDE [Concomitant]
  4. MIRAPEX [Concomitant]
  5. SELEGILINE HCL [Concomitant]

REACTIONS (5)
  - DIARRHOEA [None]
  - HAEMATEMESIS [None]
  - NAUSEA [None]
  - VOMITING [None]
  - WEIGHT DECREASED [None]
